FAERS Safety Report 9912640 (Version 1)
Quarter: 2014Q1

REPORT INFORMATION
  Report Type: Spontaneous
  Country: US (occurrence: None)
  Receive Date: 20140218
  Receipt Date: 20140218
  Transmission Date: 20141002
  Serious: Yes (Other)
  Sender: FDA-Public Use
  Company Number: 2013SA095669

PATIENT
  Sex: Female

DRUGS (1)
  1. GOLD BOND MEDICATED FOOT [Suspect]

REACTIONS (4)
  - Skin exfoliation [None]
  - Application site burn [None]
  - Thermal burn [None]
  - Skin exfoliation [None]
